FAERS Safety Report 18431637 (Version 2)
Quarter: 2020Q4

REPORT INFORMATION
  Report Type: Spontaneous
  Country: US (occurrence: US)
  Receive Date: 20201027
  Receipt Date: 20201027
  Transmission Date: 20210114
  Serious: Yes (Hospitalization, Other)
  Sender: FDA-Public Use
  Company Number: US-PFIZER INC-08H-163-0313757-00

PATIENT
  Age: 47 Year
  Sex: Male

DRUGS (4)
  1. OXYCODONE [Concomitant]
     Active Substance: OXYCODONE
     Dosage: UNK, CONTROLLED-RELEASE
  2. MEPERIDINE HCL [Suspect]
     Active Substance: MEPERIDINE HYDROCHLORIDE
     Dosage: FREQ: 4 DAYS
  3. FENTANYL. [Concomitant]
     Active Substance: FENTANYL
     Dosage: UNK
     Route: 062
  4. NALOXONE HCL [Interacting]
     Active Substance: NALOXONE HYDROCHLORIDE
     Dosage: 0.6 MG (0.2 MG INCREMENTS)

REACTIONS (5)
  - Generalised tonic-clonic seizure [Recovered/Resolved]
  - Wrong product administered [Recovered/Resolved]
  - Drug interaction [Recovered/Resolved]
  - Overdose [Recovered/Resolved]
  - Incorrect dose administered [Recovered/Resolved]
